FAERS Safety Report 15188294 (Version 2)
Quarter: 2018Q3

REPORT INFORMATION
  Report Type: Report from Study
  Country: DE (occurrence: DE)
  Receive Date: 20180724
  Receipt Date: 20180907
  Transmission Date: 20181010
  Serious: Yes (Other)
  Sender: FDA-Public Use
  Company Number: DE-ROCHE-2009438

PATIENT
  Age: 41 Year
  Sex: Female
  Weight: 58 kg

DRUGS (10)
  1. XELODA [Suspect]
     Active Substance: CAPECITABINE
     Route: 048
     Dates: start: 20160113, end: 20160113
  2. BEVACIZUMAB. [Suspect]
     Active Substance: BEVACIZUMAB
     Route: 042
     Dates: start: 20150916, end: 20150916
  3. XELODA [Suspect]
     Active Substance: CAPECITABINE
     Route: 048
     Dates: start: 20151007, end: 20151007
  4. XELODA [Suspect]
     Active Substance: CAPECITABINE
     Route: 048
     Dates: start: 20151202, end: 20151202
  5. BEVACIZUMAB. [Suspect]
     Active Substance: BEVACIZUMAB
     Indication: BREAST CANCER
     Route: 042
     Dates: start: 20160113, end: 20160113
  6. XELODA [Suspect]
     Active Substance: CAPECITABINE
     Indication: BREAST CANCER
     Dosage: D1?D14 OF EACH 3 WEEK CYCLE
     Route: 048
     Dates: start: 20150825, end: 20150825
  7. XELODA [Suspect]
     Active Substance: CAPECITABINE
     Route: 048
     Dates: start: 20151223, end: 20151223
  8. XELODA [Suspect]
     Active Substance: CAPECITABINE
     Route: 048
     Dates: start: 20150916, end: 20150916
  9. BEVACIZUMAB. [Suspect]
     Active Substance: BEVACIZUMAB
     Indication: BREAST CANCER
     Route: 042
     Dates: start: 20150825, end: 20150825
  10. XELODA [Suspect]
     Active Substance: CAPECITABINE
     Route: 048
     Dates: start: 20151028, end: 20151028

REACTIONS (2)
  - Malignant neoplasm progression [Not Recovered/Not Resolved]
  - Palmar-plantar erythrodysaesthesia syndrome [Recovered/Resolved]

NARRATIVE: CASE EVENT DATE: 20150930
